FAERS Safety Report 7268126-5 (Version None)
Quarter: 2010Q4

REPORT INFORMATION
  Report Type: 
  Country: None (occurrence: None)
  Receive Date: 20101206
  Receipt Date: 20100609
  Transmission Date: 20110411
  Serious: Yes (Hospitalization)
  Sender: FDA-Public Use
  Company Number: 2010SP032573

PATIENT
  Age: 49 Year
  Sex: Female

DRUGS (6)
  1. SAPHRIS [Suspect]
     Dosage: 5 MG; QD; PO, 10 MG; QD; PO
     Route: 048
     Dates: start: 20100325, end: 20100504
  2. SAPHRIS [Suspect]
     Dosage: 5 MG; QD; PO, 10 MG; QD; PO
     Route: 048
     Dates: start: 20100325, end: 20100504
  3. LITHIUM [Concomitant]
  4. LAMICTAL [Concomitant]
  5. REQUIP [Concomitant]
  6. PROVIGIL [Concomitant]

REACTIONS (2)
  - ACUTE PSYCHOSIS [None]
  - INCORRECT ROUTE OF DRUG ADMINISTRATION [None]
